FAERS Safety Report 4639951-1 (Version None)
Quarter: 2005Q2

REPORT INFORMATION
  Report Type: 
  Country: None (occurrence: None)
  Receive Date: 20050420
  Receipt Date: 20050411
  Transmission Date: 20051028
  Serious: Yes (Hospitalization)
  Sender: FDA-Public Use
  Company Number: PHBS2005DE04992

PATIENT
  Age: 60 Year
  Sex: Male

DRUGS (5)
  1. AZATHIOPRINE [Concomitant]
     Indication: RHEUMATOID ARTHRITIS
     Dosage: UNK, UNK
     Dates: start: 19970901
  2. DICLOFENAC SODIUM [Suspect]
     Indication: RHEUMATOID ARTHRITIS
     Dosage: 150 MG, QD
     Route: 048
     Dates: start: 19910101, end: 19950801
  3. DICLOFENAC SODIUM [Suspect]
     Dosage: 100 MG, QD
     Dates: start: 19970601
  4. METHOTREXATE [Concomitant]
     Dates: end: 19970901
  5. PREDNISOLONE [Concomitant]
     Indication: RHEUMATOID ARTHRITIS
     Dosage: 10 MG, QD

REACTIONS (12)
  - ABDOMINAL PAIN [None]
  - ANAEMIA [None]
  - BLOOD CREATININE INCREASED [None]
  - COLECTOMY PARTIAL [None]
  - CROHN'S DISEASE [None]
  - DIVERTICULITIS [None]
  - FIBROSIS [None]
  - HAEMATOCRIT DECREASED [None]
  - LARGE INTESTINAL ULCER [None]
  - LARGE INTESTINE PERFORATION [None]
  - LEUKOCYTOSIS [None]
  - RED BLOOD CELL SEDIMENTATION RATE DECREASED [None]
